FAERS Safety Report 4497637-0 (Version None)
Quarter: 2004Q4

REPORT INFORMATION
  Report Type: 
  Country: None (occurrence: None)
  Receive Date: 20041110
  Receipt Date: 20041101
  Transmission Date: 20050328
  Serious: Yes (Other)
  Sender: FDA-Public Use
  Company Number: BR-BRISTOL-MYERS SQUIBB COMPANY-12751095

PATIENT
  Age: 48 Year
  Sex: Male

DRUGS (2)
  1. CAPTOPRIL [Suspect]
     Indication: HYPERTENSION
  2. CHLORTALIDONE [Concomitant]

REACTIONS (2)
  - ERYTHEMA [None]
  - SIALOADENITIS [None]
